FAERS Safety Report 4753466-1 (Version None)
Quarter: 2005Q3

REPORT INFORMATION
  Report Type: 
  Country: None (occurrence: None)
  Receive Date: 20050824
  Receipt Date: 20050818
  Transmission Date: 20060218
  Serious: Yes (Hospitalization)
  Sender: FDA-Public Use
  Company Number: US-2005-000176

PATIENT
  Age: 43 Year
  Sex: Female

DRUGS (1)
  1. BETASERON [Suspect]
     Indication: MULTIPLE SCLEROSIS
     Dosage: 8 MIU EVERY 2D SUBCUTANEOUS
     Route: 058
     Dates: start: 20031126

REACTIONS (5)
  - ABDOMINAL MASS [None]
  - DYSPNOEA EXERTIONAL [None]
  - HAEMORRHAGE [None]
  - HERNIA REPAIR [None]
  - SURGERY [None]
